FAERS Safety Report 9028477 (Version 1)
Quarter: 2013Q1

REPORT INFORMATION
  Report Type: Spontaneous
  Country: FR (occurrence: FR)
  Receive Date: 20130124
  Receipt Date: 20130124
  Transmission Date: 20140127
  Serious: Yes (Hospitalization)
  Sender: FDA-Public Use
  Company Number: FR-UCBSA-076214

PATIENT
  Age: 82 Year
  Sex: Female

DRUGS (5)
  1. ATARAX [Suspect]
     Indication: PRURITUS
     Route: 048
     Dates: start: 2012, end: 20121218
  2. XYZALL [Suspect]
     Indication: PRURITUS
     Dosage: DOSE 5 MG
     Route: 048
     Dates: start: 2012, end: 20121218
  3. NORSET [Suspect]
     Route: 048
  4. XANAX [Concomitant]
  5. FUROSEMIDE [Concomitant]

REACTIONS (5)
  - Myoclonus [Unknown]
  - Tremor [Unknown]
  - Cerebral atrophy [Unknown]
  - Electroencephalogram abnormal [Unknown]
  - Overdose [Unknown]
